FAERS Safety Report 9018040 (Version 1)
Quarter: 2013Q1

REPORT INFORMATION
  Report Type: Spontaneous
  Country: US (occurrence: None)
  Receive Date: 20130110
  Receipt Date: 20130110
  Transmission Date: 20140127
  Serious: Yes (Life-Threatening)
  Sender: FDA-Public Use
  Company Number: None

PATIENT
  Age: 24 Year
  Sex: Male
  Weight: 110 kg

DRUGS (1)
  1. LIISINOPRIL [Suspect]
     Indication: HYPERTENSION
     Dosage: 5 MG EVERY DAY PO
     Route: 048
     Dates: start: 20120929, end: 20121012

REACTIONS (1)
  - Angioedema [None]
